FAERS Safety Report 4357428-8 (Version None)
Quarter: 2004Q2

REPORT INFORMATION
  Report Type: 
  Country: None (occurrence: None)
  Receive Date: 20040506
  Receipt Date: 20040425
  Transmission Date: 20050107
  Serious: Yes (Death, Hospitalization, Other)
  Sender: FDA-Public Use
  Company Number: 2004027816

PATIENT
  Age: 58 Year
  Sex: Female

DRUGS (2)
  1. LIPITOR [Suspect]
     Indication: ILL-DEFINED DISORDER
     Dosage: 10 MG
  2. ZYRTEC [Suspect]
     Indication: URTICARIA

REACTIONS (3)
  - LEUKOCYTOCLASTIC VASCULITIS [None]
  - SURGERY [None]
  - URTICARIA [None]
